FAERS Safety Report 9503503 (Version 1)
Quarter: 2013Q3

REPORT INFORMATION
  Report Type: Spontaneous
  Country: US (occurrence: US)
  Receive Date: 20130906
  Receipt Date: 20130906
  Transmission Date: 20140515
  Serious: Yes (Disabling)
  Sender: FDA-Public Use
  Company Number: US-PFIZER INC-2013257273

PATIENT
  Age: 52 Year
  Sex: Male

DRUGS (2)
  1. DILANTIN-125 [Suspect]
     Indication: EPILEPSY
     Dosage: 100MG THREE TIMES A DAY FROM MONDAY TO FRIDAY
  2. DILANTIN-125 [Suspect]
     Dosage: 100MG 4 TIMES A DAY FROM SATURDAY TO SUNDAY

REACTIONS (2)
  - Limb discomfort [Unknown]
  - General physical health deterioration [Unknown]
